FAERS Safety Report 16749828 (Version 1)
Quarter: 2019Q3

REPORT INFORMATION
  Report Type: Report from Study
  Country: KR (occurrence: KR)
  Receive Date: 20190828
  Receipt Date: 20190828
  Transmission Date: 20191005
  Serious: Yes (Hospitalization)
  Sender: FDA-Public Use
  Company Number: PHHY2019KR199309

PATIENT
  Sex: Female

DRUGS (4)
  1. CISPLATIN. [Suspect]
     Active Substance: CISPLATIN
     Dosage: 50 MG, PER SQ METRE (4-3 WEEKS)
     Route: 042
     Dates: start: 20190522
  2. HYCAMTIN [Suspect]
     Active Substance: TOPOTECAN HYDROCHLORIDE
     Indication: OVARIAN CANCER
     Dosage: 0.75 MG/PER SQ METRE (4-3 WEEKS)
     Route: 042
     Dates: start: 20190117
  3. HYCAMTIN [Suspect]
     Active Substance: TOPOTECAN HYDROCHLORIDE
     Dosage: 0.75 MG/PER SQ METRE (4-3 WEEKS)
     Route: 042
     Dates: start: 20190522
  4. CISPLATIN. [Suspect]
     Active Substance: CISPLATIN
     Indication: PRODUCT USED FOR UNKNOWN INDICATION
     Dosage: 50 MG, PER SQ METRE (4-3 WEEKS)
     Route: 042
     Dates: start: 20190117

REACTIONS (1)
  - Hypercalcaemia [Recovered/Resolved]

NARRATIVE: CASE EVENT DATE: 20190226
